FAERS Safety Report 17052497 (Version 1)
Quarter: 2019Q4

REPORT INFORMATION
  Report Type: Spontaneous
  Country: US (occurrence: US)
  Receive Date: 20191119
  Receipt Date: 20191119
  Transmission Date: 20200122
  Serious: Yes (Other)
  Sender: FDA-Public Use
  Company Number: None

PATIENT
  Age: 55 Year
  Sex: Female
  Weight: 86.13 kg

DRUGS (1)
  1. FOSAPREPITANT [Suspect]
     Active Substance: FOSAPREPITANT
     Indication: ANTIEMETIC SUPPORTIVE CARE
     Dosage: ?          OTHER FREQUENCY:IV OVER 20-30 MINS;?
     Route: 041

REACTIONS (5)
  - Infusion related reaction [None]
  - Blood pressure systolic increased [None]
  - Oxygen saturation decreased [None]
  - Back pain [None]
  - Erythema [None]

NARRATIVE: CASE EVENT DATE: 20191119
